FAERS Safety Report 20701337 (Version 1)
Quarter: 2022Q2

REPORT INFORMATION
  Report Type: Spontaneous
  Country: US (occurrence: None)
  Receive Date: 20220411
  Receipt Date: 20220411
  Transmission Date: 20220721
  Serious: Yes (Hospitalization)
  Sender: FDA-Public Use
  Company Number: None

PATIENT
  Age: 52 Year
  Sex: Female
  Weight: 73.5 kg

DRUGS (12)
  1. HERCEPTIN [Suspect]
     Active Substance: TRASTUZUMAB
     Indication: Breast cancer
     Dosage: 6 MG/KG Q3W IV? ?
     Route: 042
     Dates: start: 20220325
  2. PERTUZUMAB [Suspect]
     Active Substance: PERTUZUMAB
     Indication: Breast cancer
     Dosage: 420MG Q3W IV?
     Route: 042
     Dates: start: 20220325
  3. diphenoxylate-atropine [Concomitant]
  4. FLUOXETINE [Concomitant]
  5. LEVOTHYROXINE [Concomitant]
  6. LIDOCAINE VISCOUS [Concomitant]
  7. Lidocaine-diphenhydramine [Concomitant]
  8. Malox [Concomitant]
  9. sSwish and Spit [Concomitant]
  10. Disp [Concomitant]
  11. Rft. [Concomitant]
  12. PACLITAXEL [Suspect]
     Active Substance: PACLITAXEL
     Indication: Breast cancer
     Dosage: 80 MG/M2  WEEKLY IV
     Route: 042
     Dates: start: 20220325

REACTIONS (10)
  - Diarrhoea [None]
  - Catheter site erythema [None]
  - Catheter site pain [None]
  - Febrile neutropenia [None]
  - Blood sodium decreased [None]
  - Blood potassium decreased [None]
  - Staphylococcal infection [None]
  - Sepsis [None]
  - Catheter culture positive [None]
  - Bacterial infection [None]

NARRATIVE: CASE EVENT DATE: 20220409
